FAERS Safety Report 10518909 (Version 1)
Quarter: 2014Q4

REPORT INFORMATION
  Report Type: Spontaneous
  Country: US (occurrence: None)
  Receive Date: 20141014
  Receipt Date: 20141014
  Transmission Date: 20150528
  Serious: No
  Sender: FDA-Public Use
  Company Number: None

PATIENT
  Age: 8 Year
  Sex: Male
  Weight: 26.76 kg

DRUGS (1)
  1. MIRALAX [Suspect]
     Active Substance: POLYETHYLENE GLYCOL 3350
     Indication: FAECES HARD
     Dosage: 1/2 A CAPFUL ONCE TAKEN BY MOUTH
     Route: 048
     Dates: start: 20140421, end: 20140901

REACTIONS (4)
  - Anxiety [None]
  - Aggression [None]
  - Abnormal behaviour [None]
  - Crying [None]

NARRATIVE: CASE EVENT DATE: 20140801
